FAERS Safety Report 18513819 (Version 1)
Quarter: 2020Q4

REPORT INFORMATION
  Report Type: Other
  Country: IT (occurrence: IT)
  Receive Date: 20201117
  Receipt Date: 20201117
  Transmission Date: 20210114
  Serious: Yes (Death)
  Sender: FDA-Public Use
  Company Number: IT-ALSI-202000466

PATIENT
  Age: 42 Year
  Sex: Male

DRUGS (1)
  1. NITROGEN. [Suspect]
     Active Substance: NITROGEN
     Indication: COMPLETED SUICIDE
     Route: 055

REACTIONS (1)
  - Completed suicide [Fatal]
